FAERS Safety Report 16439470 (Version 5)
Quarter: 2020Q2

REPORT INFORMATION
  Report Type: Spontaneous
  Country: US (occurrence: US)
  Receive Date: 20190617
  Receipt Date: 20200616
  Transmission Date: 20200713
  Serious: No
  Sender: FDA-Public Use
  Company Number: US-PFIZER INC-2019257330

PATIENT
  Age: 60 Year
  Sex: Female

DRUGS (3)
  1. IBRANCE [Suspect]
     Active Substance: PALBOCICLIB
     Indication: BONE CANCER
     Dosage: 125 MG, CYCLIC (21 DAYS, THEN OFF FOR 7 DAYS EVERY 28 DAYS)
     Route: 048
     Dates: start: 201905
  2. IBRANCE [Suspect]
     Active Substance: PALBOCICLIB
     Dosage: 100 MG, CYCLIC (21 DAYS, THEN OFF FOR 7 DAYS EVERY 28 DAYS)
     Route: 048
     Dates: start: 201905, end: 20200527
  3. IBRANCE [Suspect]
     Active Substance: PALBOCICLIB
     Dosage: 100 MG, CYCLIC (21 DAYS, THEN OFF FOR 7 DAYS EVERY 28 DAYS)
     Route: 048
     Dates: start: 20200615

REACTIONS (5)
  - Rash [Recovered/Resolved]
  - Fatigue [Recovering/Resolving]
  - Red blood cell count decreased [Not Recovered/Not Resolved]
  - Sleep disorder [Not Recovered/Not Resolved]
  - Nausea [Not Recovered/Not Resolved]
